FAERS Safety Report 15336548 (Version 1)
Quarter: 2018Q3

REPORT INFORMATION
  Report Type: Report from Study
  Country: US (occurrence: US)
  Receive Date: 20180830
  Receipt Date: 20180830
  Transmission Date: 20181010
  Serious: No
  Sender: FDA-Public Use
  Company Number: PHEH2018US035132

PATIENT
  Sex: Female

DRUGS (1)
  1. AFINITOR [Suspect]
     Active Substance: EVEROLIMUS
     Indication: ASTROCYTOMA, LOW GRADE
     Dosage: 7 MG, QD
     Route: 048
     Dates: start: 20160716

REACTIONS (2)
  - Weight decreased [Not Recovered/Not Resolved]
  - Sensation of foreign body [Not Recovered/Not Resolved]
